FAERS Safety Report 10078746 (Version 1)
Quarter: 2014Q2

REPORT INFORMATION
  Report Type: Spontaneous
  Country: GB (occurrence: None)
  Receive Date: 20140411
  Receipt Date: 20140411
  Transmission Date: 20141212
  Serious: Yes (Hospitalization, Other)
  Sender: FDA-Public Use
  Company Number: 2014GB00319

PATIENT
  Age: 65 Year
  Sex: Female

DRUGS (1)
  1. ALENDRONATE [Suspect]
     Indication: OSTEOPOROSIS

REACTIONS (6)
  - Medication error [None]
  - Intervertebral disc degeneration [None]
  - Pain [None]
  - Spinal cord oedema [None]
  - Cervical vertebral fracture [None]
  - Osteoporotic fracture [None]
